FAERS Safety Report 7302973-6 (Version None)
Quarter: 2011Q1

REPORT INFORMATION
  Report Type: 
  Country: None (occurrence: None)
  Receive Date: 20110220
  Receipt Date: 20110210
  Transmission Date: 20110831
  Serious: Yes (Other)
  Sender: FDA-Public Use
  Company Number: FR-BRISTOL-MYERS SQUIBB COMPANY-15547474

PATIENT
  Sex: Female

DRUGS (3)
  1. SUSTIVA [Suspect]
  2. VIDEX [Suspect]
  3. LAMIVUDINE [Suspect]

REACTIONS (2)
  - PORTAL HYPERTENSION [None]
  - ASCITES [None]
